FAERS Safety Report 11514031 (Version 1)
Quarter: 2015Q3

REPORT INFORMATION
  Report Type: Spontaneous
  Country: US (occurrence: US)
  Receive Date: 20150916
  Receipt Date: 20150916
  Transmission Date: 20151125
  Serious: No
  Sender: FDA-Public Use
  Company Number: US-PFIZER INC-2015309052

PATIENT

DRUGS (1)
  1. VENLAFAXINE XR [Suspect]
     Active Substance: VENLAFAXINE HYDROCHLORIDE
     Dosage: UNK

REACTIONS (1)
  - Blood pressure abnormal [Unknown]
